FAERS Safety Report 7423193-0 (Version None)
Quarter: 2011Q2

REPORT INFORMATION
  Report Type: 
  Country: None (occurrence: None)
  Receive Date: 20110419
  Receipt Date: 20101102
  Transmission Date: 20111010
  Serious: Yes (Hospitalization, Other)
  Sender: FDA-Public Use
  Company Number: US-BAYER-201031421NA

PATIENT
  Age: 48 Year
  Sex: Female
  Weight: 70.748 kg

DRUGS (19)
  1. IBUPROFEN [Concomitant]
  2. NABUMETONE [Concomitant]
  3. FLEXERIL [Concomitant]
     Dosage: 10 MG, QD
  4. DIUREX [Suspect]
     Dosage: UNK UNK, QD
  5. GABAPENTIN [Concomitant]
  6. BUPROPION HYDROCHLORIDE [Concomitant]
  7. OYSCO [Concomitant]
  8. DIETARY SUPPLEMENT [Concomitant]
  9. YAZ [Suspect]
     Indication: CONTRACEPTION
     Route: 048
     Dates: start: 20071001, end: 20080701
  10. NEURONTIN [Concomitant]
     Dosage: 800 MG, QD
  11. VALTREX [Concomitant]
     Dosage: 1 G, PRN
  12. CITRACAL [Concomitant]
  13. PREVACID [Concomitant]
  14. MULTI-VITAMIN [Concomitant]
     Dosage: UNK UNK, QD
  15. EVISTA [Concomitant]
  16. OSCAL [Concomitant]
     Dosage: 500 MG, QD
  17. AMITRIPTYLINE [Concomitant]
     Dosage: 10 MG, PRN
  18. CYMBALTA [Concomitant]
     Dosage: 60 MG, QD
  19. ALPRAZOLAM [Concomitant]

REACTIONS (6)
  - ABDOMINAL RIGIDITY [None]
  - CHOLELITHIASIS [None]
  - ABDOMINAL DISCOMFORT [None]
  - CHOLECYSTITIS CHRONIC [None]
  - PANCREATITIS [None]
  - ABDOMINAL PAIN UPPER [None]
